FAERS Safety Report 22337882 (Version 1)
Quarter: 2023Q2

REPORT INFORMATION
  Report Type: Spontaneous
  Country: US (occurrence: None)
  Receive Date: 20230518
  Receipt Date: 20230518
  Transmission Date: 20230722
  Serious: No
  Sender: FDA-Public Use
  Company Number: US-ROCHE-3304818

PATIENT
  Sex: Female

DRUGS (6)
  1. ACTEMRA [Suspect]
     Active Substance: TOCILIZUMAB
     Indication: Giant cell arteritis
     Dosage: STRENGTH: 162MG/0.9M
     Route: 058
     Dates: start: 202301
  2. ACTEMRA [Suspect]
     Active Substance: TOCILIZUMAB
  3. ACTEMRA [Suspect]
     Active Substance: TOCILIZUMAB
  4. GABAPENTIN [Concomitant]
     Active Substance: GABAPENTIN
  5. FLEXERIL [Concomitant]
     Active Substance: CYCLOBENZAPRINE HYDROCHLORIDE
  6. PREDNISONE [Concomitant]
     Active Substance: PREDNISONE

REACTIONS (1)
  - Joint swelling [Unknown]
